FAERS Safety Report 23416027 (Version 2)
Quarter: 2024Q2

REPORT INFORMATION
  Report Type: Other
  Country: HR (occurrence: HR)
  Receive Date: 20240118
  Receipt Date: 20240513
  Transmission Date: 20240716
  Serious: Yes (Hospitalization, Other)
  Sender: FDA-Public Use
  Company Number: HR-BIOCON-BBL2023001292

PATIENT

DRUGS (3)
  1. BEVACIZUMAB [Suspect]
     Active Substance: BEVACIZUMAB
     Indication: Hepatocellular carcinoma
     Dosage: UNK, CYCLICAL (12 CYCLES RECEIVED)
     Route: 065
     Dates: start: 202211
  2. BEVACIZUMAB [Suspect]
     Active Substance: BEVACIZUMAB
     Dosage: UNK
     Route: 065
  3. ATEZOLIZUMAB [Suspect]
     Active Substance: ATEZOLIZUMAB
     Indication: Hepatocellular carcinoma
     Dosage: UNK, CYCLICAL
     Route: 065

REACTIONS (3)
  - Autoimmune hepatitis [Recovering/Resolving]
  - Compartment syndrome [Unknown]
  - Cellulitis [Unknown]

NARRATIVE: CASE EVENT DATE: 20230701
